FAERS Safety Report 12933316 (Version 2)
Quarter: 2017Q1

REPORT INFORMATION
  Report Type: Spontaneous
  Country: DE (occurrence: DE)
  Receive Date: 20161111
  Receipt Date: 20170110
  Transmission Date: 20170428
  Serious: Yes (Life-Threatening, Hospitalization, Other)
  Sender: FDA-Public Use
  Company Number: DE-BRISTOL-MYERS SQUIBB COMPANY-BMS-2016-093941

PATIENT
  Sex: Female
  Weight: 67 kg

DRUGS (2)
  1. PREDNISONE. [Suspect]
     Active Substance: PREDNISONE
     Indication: PRODUCT USED FOR UNKNOWN INDICATION
     Dosage: 100 MG, QD
     Route: 048
  2. ELIQUIS [Suspect]
     Active Substance: APIXABAN
     Indication: CEREBROVASCULAR ACCIDENT PROPHYLAXIS
     Dosage: 5 MG, BID
     Route: 048
     Dates: start: 201403

REACTIONS (6)
  - Performance status decreased [Unknown]
  - Autoimmune haemolytic anaemia [Not Recovered/Not Resolved]
  - Blood glucose increased [Unknown]
  - Transfusion [Unknown]
  - Respiratory distress [Unknown]
  - Chromaturia [Unknown]

NARRATIVE: CASE EVENT DATE: 2016
